FAERS Safety Report 13500725 (Version 1)
Quarter: 2017Q2

REPORT INFORMATION
  Report Type: Spontaneous
  Country: US (occurrence: US)
  Receive Date: 20170501
  Receipt Date: 20170501
  Transmission Date: 20170830
  Serious: No
  Sender: FDA-Public Use
  Company Number: US-MAYNE PHARMA-2017MYN000156

PATIENT
  Age: 70 Year
  Sex: Female
  Weight: 60.77 kg

DRUGS (6)
  1. LIOTHYRONINE [Suspect]
     Active Substance: LIOTHYRONINE
     Indication: TRI-IODOTHYRONINE DECREASED
     Dosage: 5 MCG, QD
     Route: 048
     Dates: start: 20170114, end: 20170121
  2. ARMOUR THYROID [Concomitant]
     Active Substance: THYROID, PORCINE
     Dosage: UNK
     Dates: start: 201404
  3. ALPRAZOLAM. [Concomitant]
     Active Substance: ALPRAZOLAM
     Dosage: UNK
  4. ALLERGEN EXTRACTS [Concomitant]
     Dosage: UNK
  5. PROBIOTICS NOS [Concomitant]
     Active Substance: PROBIOTICS NOS
  6. EMPIRIN [Concomitant]
     Active Substance: ASPIRIN
     Dosage: UNK
     Dates: start: 2016, end: 20170118

REACTIONS (6)
  - Flatulence [Not Recovered/Not Resolved]
  - Balance disorder [Recovered/Resolved]
  - Nausea [Recovered/Resolved]
  - Eructation [Recovered/Resolved]
  - Insomnia [Recovered/Resolved]
  - Hepatic pain [Recovered/Resolved]

NARRATIVE: CASE EVENT DATE: 20170117
